FAERS Safety Report 7677803-3 (Version None)
Quarter: 2011Q3

REPORT INFORMATION
  Report Type: 
  Country: None (occurrence: None)
  Receive Date: 20110808
  Receipt Date: 20110729
  Transmission Date: 20111222
  Serious: Yes (Life-Threatening, Hospitalization, Disabling)
  Sender: FDA-Public Use
  Company Number: GB-ACCORD-007167

PATIENT
  Age: 69 Year
  Sex: Female

DRUGS (15)
  1. ASPIRIN [Concomitant]
  2. CODEINE PHOSPHATE (CODEINE PHOSPHATE) [Concomitant]
  3. NEBIVOLOL HCL [Concomitant]
  4. WARFARIN SODIUM [Concomitant]
  5. BALSALAZIDE (BALSALAZIDE) [Concomitant]
  6. FLOXACILLIN SODIUM [Concomitant]
  7. AMIODARONE HCL [Suspect]
     Dosage: 200.00-MG-1.00 TIMES PER-1.0 DAYS / ORAL
     Route: 048
     Dates: start: 20091001, end: 20101022
  8. SIMVASTATIN [Suspect]
     Dosage: 40.00-MG-1.00 TIMES PER-1.0 DAYS/ ORAL
     Route: 048
     Dates: start: 20061201, end: 20101022
  9. CITALOPRAM HYDROBROMIDE [Concomitant]
  10. TRIMETHOPRIM [Concomitant]
  11. ACETAMINOPHEN [Concomitant]
  12. PERINDOPRIL ERBUMINE [Concomitant]
  13. SPIRONOLACTONE [Concomitant]
  14. BUMETANIDE [Concomitant]
  15. FRUSEMIDE (FRUSEMIDE) [Concomitant]

REACTIONS (6)
  - LOSS OF CONTROL OF LEGS [None]
  - RENAL IMPAIRMENT [None]
  - MOBILITY DECREASED [None]
  - PAIN IN EXTREMITY [None]
  - INTERNATIONAL NORMALISED RATIO INCREASED [None]
  - RHABDOMYOLYSIS [None]
